FAERS Safety Report 12389036 (Version 1)
Quarter: 2016Q2

REPORT INFORMATION
  Report Type: Spontaneous
  Country: US (occurrence: US)
  Receive Date: 20160520
  Receipt Date: 20160520
  Transmission Date: 20160815
  Serious: No
  Sender: FDA-Public Use
  Company Number: US-DRREDDYS-USA/USA/15/0053039

PATIENT
  Age: 60 Year
  Sex: Female

DRUGS (15)
  1. FLUVOXAMINE [Interacting]
     Active Substance: FLUVOXAMINE
     Indication: PRODUCT USED FOR UNKNOWN INDICATION
     Route: 048
  2. FLUVOXAMINE [Interacting]
     Active Substance: FLUVOXAMINE
     Route: 048
     Dates: start: 20140630
  3. LITHIUM. [Interacting]
     Active Substance: LITHIUM
     Indication: PRODUCT USED FOR UNKNOWN INDICATION
     Route: 048
  4. QUETIAPINE FUMARATE TABLETS [Interacting]
     Active Substance: QUETIAPINE FUMARATE
     Route: 048
  5. FLUVOXAMINE [Interacting]
     Active Substance: FLUVOXAMINE
     Route: 048
     Dates: start: 20140602
  6. FLUVOXAMINE [Interacting]
     Active Substance: FLUVOXAMINE
     Route: 048
     Dates: start: 20140701
  7. FLUVOXAMINE [Interacting]
     Active Substance: FLUVOXAMINE
     Route: 048
     Dates: start: 20140815
  8. LEVOTHYROXINE SODIUM. [Concomitant]
     Active Substance: LEVOTHYROXINE SODIUM
     Indication: PRODUCT USED FOR UNKNOWN INDICATION
     Route: 048
  9. FLUVOXAMINE [Interacting]
     Active Substance: FLUVOXAMINE
     Route: 048
     Dates: start: 20140624
  10. QUETIAPINE FUMARATE TABLETS [Suspect]
     Active Substance: QUETIAPINE FUMARATE
     Indication: PRODUCT USED FOR UNKNOWN INDICATION
     Route: 048
  11. FLUVOXAMINE [Interacting]
     Active Substance: FLUVOXAMINE
     Route: 048
     Dates: start: 20140625
  12. FLUVOXAMINE [Interacting]
     Active Substance: FLUVOXAMINE
     Route: 048
     Dates: start: 20140814
  13. FLUVOXAMINE [Interacting]
     Active Substance: FLUVOXAMINE
     Route: 048
     Dates: start: 20140818, end: 20140819
  14. BUPROPION. [Interacting]
     Active Substance: BUPROPION
     Indication: PRODUCT USED FOR UNKNOWN INDICATION
     Route: 048
  15. FLUVOXAMINE [Interacting]
     Active Substance: FLUVOXAMINE
     Route: 048
     Dates: start: 20140813

REACTIONS (4)
  - Visual impairment [Recovered/Resolved]
  - Oscillopsia [Recovered/Resolved]
  - Tremor [Recovered/Resolved]
  - Drug interaction [Unknown]
